FAERS Safety Report 5233624-2 (Version None)
Quarter: 2007Q1

REPORT INFORMATION
  Report Type: 
  Country: None (occurrence: None)
  Receive Date: 20070208
  Receipt Date: 20070131
  Transmission Date: 20070707
  Serious: Yes (Death, Hospitalization)
  Sender: FDA-Public Use
  Company Number: ES-PURDUE-GBR_2007_0002793

PATIENT
  Age: 88 Year
  Sex: Female

DRUGS (10)
  1. SEVREDOL TABLETS 10 MG [Suspect]
     Indication: BACK PAIN
     Route: 048
     Dates: start: 20061124, end: 20061125
  2. DURAGESIC-100 [Suspect]
     Indication: BACK PAIN
     Dosage: 8.4 MG, BID
     Route: 062
     Dates: start: 20061122, end: 20061126
  3. METAMIZOLE [Suspect]
     Indication: BACK PAIN
     Dosage: 3 GRAM, TID
     Route: 048
     Dates: start: 20061102, end: 20061122
  4. CALCITONIN-SALMON [Concomitant]
     Indication: DRUG USE FOR UNKNOWN INDICATION
     Route: 065
  5. MASTICAL [Concomitant]
     Indication: DRUG USE FOR UNKNOWN INDICATION
     Route: 065
  6. FOSAMAX [Concomitant]
     Indication: DRUG USE FOR UNKNOWN INDICATION
     Route: 065
  7. ASPIRIN [Concomitant]
     Indication: DRUG USE FOR UNKNOWN INDICATION
     Dosage: 100 MG, DAILY
     Route: 048
     Dates: start: 20060701
  8. ADOLONTA [Concomitant]
     Indication: BACK PAIN
     Dosage: 150 MG, TID
     Route: 048
     Dates: start: 20061027
  9. ENALAPRIL MALEATE AND HYDROCHLOROTHIAZIDE [Concomitant]
     Indication: DRUG USE FOR UNKNOWN INDICATION
     Dosage: 2 DF, BID
     Route: 048
     Dates: start: 20060701
  10. CARDURA [Concomitant]
     Indication: DRUG USE FOR UNKNOWN INDICATION
     Dosage: UNK, UNK
     Route: 048
     Dates: start: 20060701

REACTIONS (7)
  - ACIDOSIS [None]
  - CONFUSIONAL STATE [None]
  - DRUG INEFFECTIVE [None]
  - LEUKOCYTOSIS [None]
  - RENAL FAILURE ACUTE [None]
  - RENAL TUBULAR NECROSIS [None]
  - SHIFT TO THE LEFT [None]
